FAERS Safety Report 24947663 (Version 1)
Quarter: 2025Q1

REPORT INFORMATION
  Report Type: Spontaneous
  Country: DK (occurrence: DK)
  Receive Date: 20250210
  Receipt Date: 20250210
  Transmission Date: 20250408
  Serious: Yes (Life-Threatening, Other)
  Sender: AUROBINDO
  Company Number: DK-DKMA-30741486

PATIENT
  Age: 75 Year
  Sex: Male
  Weight: 81 kg

DRUGS (1)
  1. OLANZAPINE [Suspect]
     Active Substance: OLANZAPINE
     Indication: Delirium
     Route: 048
     Dates: start: 20241028, end: 202411

REACTIONS (5)
  - Cardiac arrest [Recovered/Resolved]
  - Pulseless electrical activity [Recovered/Resolved]
  - Loss of consciousness [Not Recovered/Not Resolved]
  - Agonal respiration [Unknown]
  - Apnoea [Unknown]

NARRATIVE: CASE EVENT DATE: 20241103
